FAERS Safety Report 14675306 (Version 1)
Quarter: 2018Q1

REPORT INFORMATION
  Report Type: Spontaneous
  Country: US (occurrence: US)
  Receive Date: 20180323
  Receipt Date: 20180323
  Transmission Date: 20180509
  Serious: Yes (Other)
  Sender: FDA-Public Use
  Company Number: US-009507513-0812USA00998

PATIENT
  Age: 11 Year
  Sex: Male
  Weight: 37.2 kg

DRUGS (2)
  1. SINGULAIR [Suspect]
     Active Substance: MONTELUKAST SODIUM
     Indication: MULTIPLE ALLERGIES
  2. SINGULAIR [Suspect]
     Active Substance: MONTELUKAST SODIUM
     Indication: ASTHMA
     Dosage: 5 MG, NIGHTLY
     Route: 048
     Dates: start: 19990305, end: 20080328

REACTIONS (17)
  - Dizziness [Unknown]
  - Tremor [Unknown]
  - Treatment failure [Unknown]
  - Headache [Unknown]
  - Fear [Unknown]
  - Frustration tolerance decreased [Unknown]
  - Mood swings [Unknown]
  - Nausea [Unknown]
  - Generalised anxiety disorder [Unknown]
  - Decreased interest [Unknown]
  - Morbid thoughts [Unknown]
  - Obsessive-compulsive disorder [Unknown]
  - Anxiety [Unknown]
  - Abdominal pain upper [Unknown]
  - Emotional disorder [Unknown]
  - Aggression [Unknown]
  - Vomiting [Unknown]

NARRATIVE: CASE EVENT DATE: 20080401
